FAERS Safety Report 8465652-8 (Version None)
Quarter: 2012Q2

REPORT INFORMATION
  Report Type: 
  Country: None (occurrence: None)
  Receive Date: 20120626
  Receipt Date: 20120612
  Transmission Date: 20120825
  Serious: No
  Sender: FDA-Public Use
  Company Number: US-ASTRAZENECA-2012SE39200

PATIENT
  Age: 30 Year
  Sex: Female
  Weight: 97.5 kg

DRUGS (3)
  1. LISINOPRIL [Concomitant]
     Indication: BLOOD PRESSURE
  2. ATENOLOL [Concomitant]
     Indication: BLOOD PRESSURE
  3. NEXIUM [Suspect]
     Indication: GASTROOESOPHAGEAL REFLUX DISEASE
     Route: 048
     Dates: start: 20070101

REACTIONS (2)
  - HYPERTENSION [None]
  - DRUG DOSE OMISSION [None]
